FAERS Safety Report 8185443-5 (Version None)
Quarter: 2012Q1

REPORT INFORMATION
  Report Type: 
  Country: None (occurrence: None)
  Receive Date: 20120305
  Receipt Date: 20120227
  Transmission Date: 20120608
  Serious: Yes (Hospitalization)
  Sender: FDA-Public Use
  Company Number: JP-TEVA-324944ISR

PATIENT
  Age: 48 Year
  Sex: Male

DRUGS (5)
  1. PREDNISOLONE [Suspect]
     Indication: SYSTEMIC LUPUS ERYTHEMATOSUS
     Dosage: 50MG DAILY; THEN DECREASED TO 40MG DAILY
     Route: 048
  2. GLIMEPIRIDE [Concomitant]
     Indication: DIABETES MELLITUS
     Route: 065
  3. PREDNISOLONE [Suspect]
     Route: 042
  4. PREDNISOLONE [Suspect]
     Dosage: 40MG DAILY
     Route: 065
  5. VOGLIBOSE [Suspect]
     Indication: DIABETES MELLITUS
     Route: 065

REACTIONS (2)
  - BLOOD GLUCOSE INCREASED [None]
  - PNEUMATOSIS INTESTINALIS [None]
